FAERS Safety Report 6337803-2 (Version None)
Quarter: 2009Q3

REPORT INFORMATION
  Report Type: 
  Country: None (occurrence: None)
  Receive Date: 20090902
  Receipt Date: 20090828
  Transmission Date: 20100115
  Serious: Yes (Other)
  Sender: FDA-Public Use
  Company Number: A0797667A

PATIENT
  Age: 16 Year
  Sex: Male

DRUGS (1)
  1. LAMOTRIGINE [Suspect]
     Dosage: 300MG TWICE PER DAY
     Route: 048

REACTIONS (6)
  - GRAND MAL CONVULSION [None]
  - HEADACHE [None]
  - INCORRECT DOSE ADMINISTERED [None]
  - OCULAR HYPERAEMIA [None]
  - POSTICTAL STATE [None]
  - PRODUCT QUALITY ISSUE [None]
